FAERS Safety Report 6137453-7 (Version None)
Quarter: 2009Q1

REPORT INFORMATION
  Report Type: 
  Country: None (occurrence: None)
  Receive Date: 20090326
  Receipt Date: 20090313
  Transmission Date: 20090719
  Serious: Yes (Death, Other)
  Sender: FDA-Public Use
  Company Number: 2009AL001546

PATIENT
  Age: 18 Year
  Sex: Female

DRUGS (1)
  1. FEVERALL [Suspect]
     Dosage: 7 GM;X1
     Dates: start: 20090201, end: 20090201

REACTIONS (3)
  - ACUTE HEPATIC FAILURE [None]
  - HEPATOTOXICITY [None]
  - INTENTIONAL OVERDOSE [None]
